FAERS Safety Report 9665131 (Version 1)
Quarter: 2013Q4

REPORT INFORMATION
  Report Type: Spontaneous
  Country: US (occurrence: US)
  Receive Date: 20131101
  Receipt Date: 20131101
  Transmission Date: 20140711
  Serious: Yes (Hospitalization, Other)
  Sender: FDA-Public Use
  Company Number: US-009507513-1310USA015010

PATIENT
  Age: 82 Year
  Sex: Female

DRUGS (1)
  1. FOSAMAX [Suspect]
     Dosage: UNK
     Route: 048
     Dates: start: 2006, end: 20130920

REACTIONS (4)
  - Femur fracture [Recovering/Resolving]
  - Pain [Recovering/Resolving]
  - Restless legs syndrome [Unknown]
  - Tinnitus [Unknown]
